FAERS Safety Report 19262493 (Version 5)
Quarter: 2021Q4

REPORT INFORMATION
  Report Type: Spontaneous
  Country: JP (occurrence: JP)
  Receive Date: 20210517
  Receipt Date: 20211018
  Transmission Date: 20220303
  Serious: Yes (Hospitalization, Other)
  Sender: FDA-Public Use
  Company Number: JP-ASTELLAS-2021JP008553

PATIENT
  Age: 69 Year
  Sex: Male

DRUGS (3)
  1. XOSPATA [Suspect]
     Active Substance: GILTERITINIB
     Indication: Acute myeloid leukaemia recurrent
     Route: 048
     Dates: start: 20210402, end: 20210715
  2. CYTARABINE [Suspect]
     Active Substance: CYTARABINE
     Indication: Product used for unknown indication
     Dosage: UNK UNK, UNKNOWN FREQ.
     Route: 065
  3. ACLARUBICIN HYDROCHLORIDE [Suspect]
     Active Substance: ACLARUBICIN HYDROCHLORIDE
     Indication: Product used for unknown indication
     Dosage: UNK UNK, UNKNOWN FREQ.
     Route: 065

REACTIONS (3)
  - Thrombocytopenia [Not Recovered/Not Resolved]
  - Neutropenia [Not Recovered/Not Resolved]
  - Anaemia [Not Recovered/Not Resolved]

NARRATIVE: CASE EVENT DATE: 20210402
